FAERS Safety Report 5489672-0 (Version None)
Quarter: 2007Q4

REPORT INFORMATION
  Report Type: 
  Country: None (occurrence: None)
  Receive Date: 20071018
  Receipt Date: 20071009
  Transmission Date: 20080405
  Serious: Yes (Hospitalization, Other)
  Sender: FDA-Public Use
  Company Number: US-ROCHE-523759

PATIENT
  Age: 64 Year
  Sex: Female

DRUGS (3)
  1. BONIVA [Suspect]
     Indication: OSTEOPOROSIS
     Route: 065
     Dates: start: 20050901, end: 20060901
  2. CRESTOR [Concomitant]
  3. ZETIA [Concomitant]

REACTIONS (4)
  - ANAEMIA [None]
  - BLADDER CANCER [None]
  - DEHYDRATION [None]
  - HYPOTENSION [None]
